FAERS Safety Report 6057500-0 (Version None)
Quarter: 2009Q1

REPORT INFORMATION
  Report Type: 
  Country: None (occurrence: None)
  Receive Date: 20090126
  Receipt Date: 20090126
  Transmission Date: 20090719
  Serious: Yes (Other)
  Sender: FDA-Public Use
  Company Number: None

PATIENT
  Age: 46 Year
  Sex: Female
  Weight: 99.7913 kg

DRUGS (2)
  1. PAXIL [Suspect]
     Indication: ACNE
     Dosage: 1 DOSE
     Dates: start: 19980115, end: 19980115
  2. PAXIL [Suspect]
     Indication: OBSESSIVE-COMPULSIVE DISORDER
     Dosage: 1 DOSE
     Dates: start: 19980115, end: 19980115

REACTIONS (4)
  - BALANCE DISORDER [None]
  - DIZZINESS [None]
  - INSOMNIA [None]
  - VERTIGO [None]
